FAERS Safety Report 5287634-X (Version None)
Quarter: 2007Q1

REPORT INFORMATION
  Report Type: 
  Country: None (occurrence: None)
  Receive Date: 20070103
  Receipt Date: 20060816
  Transmission Date: 20070707
  Serious: Yes (Death)
  Sender: FDA-Public Use
  Company Number: A03200605168

PATIENT
  Age: 41 Year
  Sex: Male

DRUGS (3)
  1. DEMEROL [Suspect]
     Indication: PAIN
     Dosage: 1 TO 2 TABLETS EVERY 4 TO 6 HOURS AS NEEDED FOR PAIN - ORAL
     Route: 048
     Dates: start: 20060731
  2. PHENYTOIN [Suspect]
     Indication: CONVULSION
     Dosage: 100 MG QD - ORAL
     Route: 048
     Dates: start: 20040101
  3. WELLBUTRIN [Suspect]
     Indication: DEPRESSION
     Dosage: ORAL
     Route: 048

REACTIONS (6)
  - CARDIAC ARREST [None]
  - CONVULSION [None]
  - DISORIENTATION [None]
  - DIZZINESS [None]
  - DRUG INEFFECTIVE [None]
  - TOXICOLOGIC TEST ABNORMAL [None]
